FAERS Safety Report 5920328-3 (Version None)
Quarter: 2008Q4

REPORT INFORMATION
  Report Type: 
  Country: None (occurrence: None)
  Receive Date: 20081016
  Receipt Date: 20081007
  Transmission Date: 20090506
  Serious: Yes (Other)
  Sender: FDA-Public Use
  Company Number: PHHY2008BR24390

PATIENT
  Age: 44 Year
  Sex: Male

DRUGS (1)
  1. FORASEQ [Suspect]
     Indication: INFLUENZA
     Dosage: TWICE DAILY
     Dates: start: 20081003

REACTIONS (2)
  - DISORIENTATION [None]
  - TACHYCARDIA [None]
